FAERS Safety Report 5940145-8 (Version None)
Quarter: 2008Q4

REPORT INFORMATION
  Report Type: 
  Country: None (occurrence: None)
  Receive Date: 20081104
  Receipt Date: 20081030
  Transmission Date: 20090506
  Serious: Yes (Death, Hospitalization)
  Sender: FDA-Public Use
  Company Number: PHHY2008BR14884

PATIENT
  Sex: Male
  Weight: 23.4 kg

DRUGS (67)
  1. SANDIMMUNE [Suspect]
     Indication: PROPHYLAXIS AGAINST GRAFT VERSUS HOST DISEASE
     Dosage: 200 MG/DAY
     Dates: start: 20071211, end: 20080110
  2. CEFEPIME [Concomitant]
  3. OMEPRAZOLE [Concomitant]
  4. LEUCOVORIN CALCIUM [Concomitant]
  5. URSODIOL [Concomitant]
  6. BROMOPRIDE [Concomitant]
  7. AMLODIPINE [Concomitant]
  8. ONDANSETRON HCL [Concomitant]
  9. ACYCLOVIR [Concomitant]
  10. FLUCONAZOLE [Concomitant]
  11. ZOVIRAX [Concomitant]
  12. ZOLBEN [Concomitant]
  13. AMIKACIN [Concomitant]
  14. DIGESAN [Concomitant]
  15. CANCIDAS [Concomitant]
  16. CAPOTEN [Concomitant]
  17. MAXCEF [Concomitant]
  18. CYCLOPHOSPHAMIDE [Concomitant]
  19. CIPRO [Concomitant]
  20. CLARITHROMYCIN [Concomitant]
  21. RIVOTRIL [Concomitant]
  22. TRAMADOL HCL [Concomitant]
  23. VALIUM [Concomitant]
  24. DIPYRONE TAB [Concomitant]
  25. DOPAMINE HCL [Concomitant]
  26. SCOPOLAMINE [Concomitant]
  27. PHENYTOIN [Concomitant]
  28. GRANULOKINE [Concomitant]
  29. ZOLTEC [Concomitant]
  30. LASIX [Concomitant]
  31. GANCICLOVIR [Concomitant]
  32. SOLU-CORTEF [Concomitant]
  33. IMMUNE GLOBULIN NOS [Concomitant]
  34. ZYVOX [Concomitant]
  35. MERONEM [Concomitant]
  36. MITEXAN (MESNA) [Concomitant]
  37. SOLU-MEDROL [Concomitant]
  38. FLAGYL [Concomitant]
  39. DORMONID [Concomitant]
  40. MORPHINE [Concomitant]
  41. METHOTREXATE [Concomitant]
  42. NORADRENALINE [Concomitant]
  43. OMEPRAZOLE [Concomitant]
  44. ZOFRAN [Concomitant]
  45. BACTRIM [Concomitant]
  46. VANCOMYCIN HYDROCHLORIDE [Concomitant]
  47. VFEND [Concomitant]
  48. ABELCET [Concomitant]
  49. HYDROXYZINE [Concomitant]
  50. POLARAMINE [Concomitant]
  51. CELLCEPT [Concomitant]
  52. PHENOBARBITAL TAB [Concomitant]
  53. HYDANTAL [Concomitant]
  54. EPINEPHRINE [Concomitant]
  55. DOBUTAMINE HCL [Concomitant]
  56. VALPROIC ACID [Concomitant]
  57. CARBAMAZEPINE [Concomitant]
  58. METHADONE HCL [Concomitant]
  59. HALDOL [Concomitant]
  60. AMPHOTERICIN B [Concomitant]
  61. IVERMECTIN [Concomitant]
  62. CLEXANE [Concomitant]
  63. PIPERACILLIN SODIUM AND TAZOBACTAM SODIUM [Concomitant]
  64. ALDACTONE [Concomitant]
  65. FOSCARNET [Concomitant]
  66. PROPOFOL [Concomitant]
  67. PRECEDEX [Concomitant]

REACTIONS (17)
  - ABDOMINAL PAIN [None]
  - AGITATION [None]
  - AMAUROSIS [None]
  - APHASIA [None]
  - ATAXIA [None]
  - COMA [None]
  - DEPRESSED LEVEL OF CONSCIOUSNESS [None]
  - ECHOLALIA [None]
  - GRAFT VERSUS HOST DISEASE [None]
  - HYPERTENSION [None]
  - IRRITABILITY [None]
  - NYSTAGMUS [None]
  - PARTIAL SEIZURES [None]
  - SEPTIC SHOCK [None]
  - SOMNOLENCE [None]
  - TACHYCARDIA [None]
  - VISION BLURRED [None]
